FAERS Safety Report 7365939-6 (Version None)
Quarter: 2011Q1

REPORT INFORMATION
  Report Type: 
  Country: None (occurrence: None)
  Receive Date: 20110322
  Receipt Date: 20110316
  Transmission Date: 20110831
  Serious: Yes (Hospitalization)
  Sender: FDA-Public Use
  Company Number: US-B.I. PHARMACEUTICALS,INC./RIDGEFIELD-2008-BP-18614BP

PATIENT
  Age: 56 Year
  Sex: Female

DRUGS (4)
  1. PROAIR HFA [Concomitant]
  2. ADVAIR DISKUS 100/50 [Concomitant]
  3. THEOPHYLLINE [Concomitant]
  4. SPIRIVA [Suspect]
     Indication: EMPHYSEMA
     Dosage: 18 MCG
     Route: 055
     Dates: start: 20040101

REACTIONS (8)
  - NERVOUSNESS [None]
  - COUGH [None]
  - PYREXIA [None]
  - PNEUMONIA [None]
  - CHRONIC OBSTRUCTIVE PULMONARY DISEASE [None]
  - EMPHYSEMA [None]
  - INCORRECT ROUTE OF DRUG ADMINISTRATION [None]
  - DEPRESSION [None]
